FAERS Safety Report 4830686-9 (Version None)
Quarter: 2005Q4

REPORT INFORMATION
  Report Type: 
  Country: None (occurrence: None)
  Receive Date: 20051114
  Receipt Date: 20051102
  Transmission Date: 20060501
  Serious: Yes (Death)
  Sender: FDA-Public Use
  Company Number: HQWYE420704NOV05

PATIENT
  Age: 77 Year
  Sex: Male

DRUGS (2)
  1. MYLOTARG [Suspect]
     Indication: ACUTE MYELOID LEUKAEMIA
     Dosage: 10 MG 1X PER 1 DAY, INTRAVENOUS DRIP
     Route: 041
     Dates: start: 20051017, end: 20051017
  2. MYLOTARG [Suspect]
     Indication: ACUTE MYELOID LEUKAEMIA
     Dosage: 10 MG 1X PER 1 DAY, INTRAVENOUS DRIP
     Route: 041
     Dates: start: 20051031, end: 20051031

REACTIONS (5)
  - CARDIAC FAILURE [None]
  - HYPERHIDROSIS [None]
  - HYPOTENSION [None]
  - INFUSION RELATED REACTION [None]
  - THROMBOSIS [None]
